FAERS Safety Report 7637056-9 (Version None)
Quarter: 2011Q3

REPORT INFORMATION
  Report Type: 
  Country: None (occurrence: None)
  Receive Date: 20110722
  Receipt Date: 20110722
  Transmission Date: 20111222
  Serious: Yes (Other)
  Sender: FDA-Public Use
  Company Number: None

PATIENT
  Sex: Female
  Weight: 72.5755 kg

DRUGS (2)
  1. AMOXICILLIN [Suspect]
     Indication: TOOTH EXTRACTION
     Dosage: 1 CAP TID PO ONE TIME
     Route: 048
     Dates: start: 20110627
  2. AMOXICILLIN [Suspect]
     Indication: PROPHYLAXIS
     Dosage: 1 CAP TID PO ONE TIME
     Route: 048
     Dates: start: 20110627

REACTIONS (3)
  - VOMITING [None]
  - NAUSEA [None]
  - DIZZINESS [None]
